FAERS Safety Report 9168721 (Version 3)
Quarter: 2013Q2

REPORT INFORMATION
  Report Type: Report from Study
  Country: NL (occurrence: NL)
  Receive Date: 20130318
  Receipt Date: 20130422
  Transmission Date: 20140414
  Serious: Yes (Death)
  Sender: FDA-Public Use
  Company Number: NL-ASTRAZENECA-2013SE17149

PATIENT
  Age: 19579 Day
  Sex: Female

DRUGS (9)
  1. AZD6140 [Suspect]
     Indication: CORONARY ARTERY DISEASE
     Route: 048
     Dates: start: 20121005
  2. ROSUVASTATINE [Concomitant]
     Indication: HYPERCHOLESTEROLAEMIA
     Route: 048
  3. TILDIEM [Concomitant]
     Indication: ANGINA PECTORIS
     Route: 048
  4. PERINDOPRIL [Concomitant]
     Indication: HYPERTENSION
     Route: 048
  5. ISORDIL [Concomitant]
     Indication: ANGINA PECTORIS
     Route: 048
  6. SLOW K [Concomitant]
     Indication: BLOOD POTASSIUM ABNORMAL
     Route: 048
  7. METOPROLOL [Concomitant]
     Indication: CARDIOVASCULAR EVENT PROPHYLAXIS
     Route: 048
  8. PANTOPRAZOL [Concomitant]
     Indication: ACID BASE BALANCE
     Route: 048
  9. ASA [Concomitant]
     Route: 048

REACTIONS (1)
  - Sudden death [Fatal]
